FAERS Safety Report 4308193-1 (Version None)
Quarter: 2004Q1

REPORT INFORMATION
  Report Type: 
  Country: None (occurrence: None)
  Receive Date: 20040301
  Receipt Date: 20030804
  Transmission Date: 20041129
  Serious: No
  Sender: FDA-Public Use
  Company Number: US-BRISTOL-MYERS SQUIBB COMPANY-12352431

PATIENT
  Age: 70 Year
  Sex: Female
  Weight: 67 kg

DRUGS (2)
  1. METFORMIN HCL [Suspect]
  2. ROSIGLITAZONE MALEATE [Concomitant]

REACTIONS (1)
  - BLOOD GLUCOSE INCREASED [None]
